FAERS Safety Report 10313946 (Version 1)
Quarter: 2014Q3

REPORT INFORMATION
  Report Type: Spontaneous
  Country: US (occurrence: None)
  Receive Date: 20140717
  Receipt Date: 20140717
  Transmission Date: 20150326
  Serious: Yes (Other)
  Sender: FDA-Public Use
  Company Number: None

PATIENT
  Age: 35 Year
  Sex: Female

DRUGS (2)
  1. VIVITROL [Suspect]
     Active Substance: NALTREXONE
     Indication: ALCOHOL USE
     Dosage: ONE 380 MG INJECTION, MONTHLY, INTRAMUSCULAR
     Route: 030
     Dates: start: 20140626
  2. VIVITROL [Suspect]
     Active Substance: NALTREXONE
     Indication: DRUG DEPENDENCE
     Dosage: ONE 380 MG INJECTION, MONTHLY, INTRAMUSCULAR
     Route: 030
     Dates: start: 20140626

REACTIONS (2)
  - Constipation [None]
  - Depression [None]

NARRATIVE: CASE EVENT DATE: 20140629
